FAERS Safety Report 23644617 (Version 1)
Quarter: 2024Q1

REPORT INFORMATION
  Report Type: Spontaneous
  Country: US (occurrence: None)
  Receive Date: 20240317
  Receipt Date: 20240317
  Transmission Date: 20240410
  Serious: Yes (Other)
  Sender: FDA-Public Use
  Company Number: None

PATIENT
  Age: 54 Year
  Sex: Male
  Weight: 135 kg

DRUGS (22)
  1. OZEMPIC [Suspect]
     Active Substance: SEMAGLUTIDE
  2. MOUNJARO [Suspect]
     Active Substance: TIRZEPATIDE
  3. JANUVIA [Suspect]
     Active Substance: SITAGLIPTIN PHOSPHATE
  4. Cpap [Concomitant]
  5. glucose meter [Concomitant]
  6. treseba [Concomitant]
  7. NOVOLOG [Concomitant]
     Active Substance: INSULIN ASPART
  8. METFORMIN [Concomitant]
  9. GLIMEPIRIDE [Concomitant]
     Active Substance: GLIMEPIRIDE
  10. AMLODIPINE [Concomitant]
  11. METOPROLOL [Concomitant]
  12. LEVOTHYROXINE [Concomitant]
  13. nexium [Concomitant]
  14. ATORVASTATIN [Concomitant]
  15. allapurinol [Concomitant]
  16. LISINOPRIL [Concomitant]
  17. OXYCONTIN [Concomitant]
  18. OXYCODONE [Concomitant]
     Active Substance: OXYCODONE\OXYCODONE HYDROCHLORIDE
  19. zofran [Concomitant]
  20. VITAMINS [Concomitant]
     Active Substance: VITAMINS
  21. IBUPROFEN [Concomitant]
  22. TYLENOL [Concomitant]

REACTIONS (5)
  - Dehydration [None]
  - Product use issue [None]
  - Glycosylated haemoglobin increased [None]
  - Diarrhoea [None]
  - Product availability issue [None]

NARRATIVE: CASE EVENT DATE: 20240315
